FAERS Safety Report 9605262 (Version 3)
Quarter: 2013Q4

REPORT INFORMATION
  Report Type: Spontaneous
  Country: FR (occurrence: FR)
  Receive Date: 20131008
  Receipt Date: 20131204
  Transmission Date: 20140711
  Serious: Yes (Congenital Anomaly)
  Sender: FDA-Public Use
  Company Number: FR-GLAXOSMITHKLINE-B0927341B

PATIENT
  Sex: Female

DRUGS (2)
  1. DEROXAT [Suspect]
     Indication: DEPRESSION
     Dosage: 20MG PER DAY
     Route: 064
     Dates: start: 20130201, end: 20130610
  2. ZOLOFT [Suspect]
     Indication: DEPRESSION
     Dosage: 50MG PER DAY
     Route: 064
     Dates: start: 20130611, end: 20130627

REACTIONS (6)
  - Multiple congenital abnormalities [Unknown]
  - Dilatation ventricular [Unknown]
  - Dysmorphism [Unknown]
  - Microphthalmos [Unknown]
  - Aplasia [Unknown]
  - Foetal exposure during pregnancy [Unknown]
